FAERS Safety Report 23966031 (Version 1)
Quarter: 2024Q2

REPORT INFORMATION
  Report Type: Spontaneous
  Country: US (occurrence: None)
  Receive Date: 20240611
  Receipt Date: 20240611
  Transmission Date: 20240715
  Serious: Yes (Hospitalization)
  Sender: FDA-Public Use
  Company Number: None

PATIENT
  Age: 42 Year
  Sex: Male

DRUGS (1)
  1. RETACRIT [Suspect]
     Active Substance: EPOETIN ALFA-EPBX
     Indication: Anaemia
     Dosage: FREQUENCY : WEEKLY;?
     Route: 030
     Dates: start: 202402

REACTIONS (2)
  - Product use issue [None]
  - Haemoglobin decreased [None]

NARRATIVE: CASE EVENT DATE: 20240515
